FAERS Safety Report 5994848-X (Version None)
Quarter: 2008Q4

REPORT INFORMATION
  Report Type: 
  Country: None (occurrence: None)
  Receive Date: 20081212
  Receipt Date: 20080916
  Transmission Date: 20090506
  Serious: No
  Sender: FDA-Public Use
  Company Number: US-ABBOTT-08P-163-0476632-00

PATIENT
  Sex: Female
  Weight: 68.1 kg

DRUGS (4)
  1. HUMIRA [Suspect]
     Indication: CROHN'S DISEASE
     Route: 050
     Dates: start: 20080901
  2. UNKNOWN MEDICATION [Concomitant]
     Indication: HEADACHE
     Route: 048
  3. UNKNOWN MEDICATION [Concomitant]
     Indication: CROHN'S DISEASE
     Route: 048
  4. UNKNOWN MEDICATION [Concomitant]
     Indication: MIGRAINE
     Route: 048

REACTIONS (1)
  - KIDNEY INFECTION [None]
